FAERS Safety Report 6736169-3 (Version None)
Quarter: 2010Q2

REPORT INFORMATION
  Report Type: 
  Country: None (occurrence: None)
  Receive Date: 20100521
  Receipt Date: 20100510
  Transmission Date: 20101027
  Serious: Yes (Congenital Anomaly)
  Sender: FDA-Public Use
  Company Number: GB-JNJFOC-20100303006

PATIENT

DRUGS (4)
  1. REMICADE [Suspect]
     Indication: DRUG EXPOSURE DURING PREGNANCY
     Route: 064
  2. IRON [Concomitant]
  3. CALCIUM + D3 [Concomitant]
  4. ISONIAZID [Concomitant]

REACTIONS (1)
  - VENTRICULAR SEPTAL DEFECT [None]
